FAERS Safety Report 10587567 (Version 2)
Quarter: 2014Q4

REPORT INFORMATION
  Report Type: Spontaneous
  Country: AO (occurrence: AO)
  Receive Date: 20141117
  Receipt Date: 20141117
  Transmission Date: 20150529
  Serious: Yes (Hospitalization)
  Sender: FDA-Public Use
  Company Number: AO-BAYER-2014-158679

PATIENT
  Age: 44 Year
  Sex: Female

DRUGS (3)
  1. ULTRAVIST [Suspect]
     Active Substance: IOPROMIDE
     Indication: ABDOMINAL PAIN
     Dosage: 70 ML, ONCE
     Route: 042
     Dates: start: 20140912, end: 20140912
  2. SALINE [Suspect]
     Active Substance: SODIUM CHLORIDE
     Dosage: UNK
     Dates: start: 20140912, end: 20140912
  3. ULTRAVIST [Suspect]
     Active Substance: IOPROMIDE
     Indication: ABDOMINAL PAIN
     Dosage: 20 ML, ONCE
     Route: 048
     Dates: start: 20140912, end: 20140912

REACTIONS (4)
  - Pyrexia [Recovered/Resolved]
  - Pain [Recovered/Resolved]
  - Incorrect route of drug administration [None]
  - Headache [Recovered/Resolved]

NARRATIVE: CASE EVENT DATE: 20140912
